FAERS Safety Report 17194403 (Version 2)
Quarter: 2019Q4

REPORT INFORMATION
  Report Type: Spontaneous
  Country: AT (occurrence: AT)
  Receive Date: 20191224
  Receipt Date: 20191224
  Transmission Date: 20200122
  Serious: Yes (Other)
  Sender: FDA-Public Use
  Company Number: AT-PFIZER INC-2019554099

PATIENT
  Sex: Female

DRUGS (8)
  1. PACLITAXEL. [Suspect]
     Active Substance: PACLITAXEL
     Dosage: 145.66 MG, UNK
     Route: 042
     Dates: start: 20190325
  2. PACLITAXEL. [Suspect]
     Active Substance: PACLITAXEL
     Dosage: 108.59 MG, UNK
     Route: 042
     Dates: start: 20190826
  3. RAMUCIRUMAB [Suspect]
     Active Substance: RAMUCIRUMAB
     Dosage: 544 MG, UNK
     Route: 042
     Dates: start: 20190527
  4. RAMUCIRUMAB [Suspect]
     Active Substance: RAMUCIRUMAB
     Dosage: 568 MG, UNK
     Route: 042
     Dates: start: 20190715
  5. PACLITAXEL. [Suspect]
     Active Substance: PACLITAXEL
     Indication: GASTRIC CANCER
     Dosage: 143.02 MG, UNK
     Route: 042
     Dates: start: 20190318
  6. PACLITAXEL. [Suspect]
     Active Substance: PACLITAXEL
     Dosage: 143.02 MG, UNK
     Route: 042
     Dates: start: 20190423
  7. PACLITAXEL. [Suspect]
     Active Substance: PACLITAXEL
     Dosage: 109.25 MG, UNK
     Route: 042
     Dates: start: 20190701
  8. RAMUCIRUMAB [Suspect]
     Active Substance: RAMUCIRUMAB
     Indication: GASTRIC CANCER
     Dosage: 588 MG, UNK
     Route: 042

REACTIONS (3)
  - Epistaxis [Unknown]
  - Hydronephrosis [Unknown]
  - Asthenia [Recovered/Resolved]

NARRATIVE: CASE EVENT DATE: 20190613
